FAERS Safety Report 7074593-2 (Version None)
Quarter: 2010Q4

REPORT INFORMATION
  Report Type: 
  Country: None (occurrence: None)
  Receive Date: 20101029
  Receipt Date: 20101026
  Transmission Date: 20110411
  Serious: Yes (Hospitalization, Congenital Anomaly)
  Sender: FDA-Public Use
  Company Number: A0680226A

PATIENT
  Sex: Male

DRUGS (3)
  1. PAXIL [Suspect]
     Indication: PRODUCT USED FOR UNKNOWN INDICATION
     Dosage: 10MG PER DAY
  2. LEVOXYL [Concomitant]
  3. PRENATAL VITAMINS [Concomitant]

REACTIONS (6)
  - CONGENITAL ANOMALY [None]
  - CONGENITAL AORTIC ANOMALY [None]
  - DRUG EXPOSURE DURING PREGNANCY [None]
  - FALLOT'S TETRALOGY [None]
  - PULMONARY VALVE STENOSIS [None]
  - VENTRICULAR SEPTAL DEFECT [None]
